FAERS Safety Report 6731806-1 (Version None)
Quarter: 2010Q2

REPORT INFORMATION
  Report Type: 
  Country: None (occurrence: None)
  Receive Date: 20100519
  Receipt Date: 20100507
  Transmission Date: 20101027
  Serious: Yes (Other)
  Sender: FDA-Public Use
  Company Number: NO-PFIZER INC-2010058333

PATIENT
  Age: 68 Year
  Sex: Female

DRUGS (2)
  1. SOMAVERT [Suspect]
     Dosage: 20 MG, 3 TIMES A WEEK
  2. SANDOSTATIN LAR [Concomitant]
     Dosage: UNK

REACTIONS (2)
  - OVARIAN CANCER [None]
  - WEIGHT INCREASED [None]
